FAERS Safety Report 8553972-8 (Version None)
Quarter: 2012Q3

REPORT INFORMATION
  Report Type: 
  Country: None (occurrence: None)
  Receive Date: 20120731
  Receipt Date: 20120726
  Transmission Date: 20120928
  Serious: Yes (Other)
  Sender: FDA-Public Use
  Company Number: US-PFIZER INC-2012182347

PATIENT
  Sex: Female
  Weight: 88.889 kg

DRUGS (12)
  1. COZAAR [Concomitant]
     Dosage: UNK
  2. PEPCID [Concomitant]
     Dosage: UNK
  3. ABILIFY [Concomitant]
     Dosage: UNK
  4. NORVASC [Concomitant]
     Dosage: UNK
  5. VITAMIN D [Concomitant]
     Dosage: UNK
  6. LIBRIUM [Concomitant]
     Dosage: UNK
  7. CALCIUM [Concomitant]
     Dosage: UNK
  8. PREDNISONE [Concomitant]
     Indication: TEMPORAL ARTERITIS
     Dosage: 5 MG, UNK
  9. AMBIEN [Concomitant]
     Dosage: UNK
  10. ACETYLSALICYLIC ACID [Concomitant]
     Dosage: UNK
  11. TRAMADOL [Concomitant]
     Indication: PAIN
     Dosage: UNK
  12. PREMARIN [Suspect]
     Indication: HORMONE REPLACEMENT THERAPY
     Dosage: 0.625 MG, UNK
     Dates: start: 19750101, end: 20120401

REACTIONS (7)
  - NERVOUSNESS [None]
  - CRYING [None]
  - ACTIVITIES OF DAILY LIVING IMPAIRED [None]
  - INSOMNIA [None]
  - HOT FLUSH [None]
  - FEELING ABNORMAL [None]
  - HYPERHIDROSIS [None]
